FAERS Safety Report 5381114-9 (Version None)
Quarter: 2007Q3

REPORT INFORMATION
  Report Type: 
  Country: None (occurrence: None)
  Receive Date: 20070706
  Receipt Date: 20070625
  Transmission Date: 20080115
  Serious: Yes (Disabling, Other)
  Sender: FDA-Public Use
  Company Number: FR-PFIZER INC-2007039568

PATIENT
  Sex: Female
  Weight: 93 kg

DRUGS (14)
  1. LIPITOR [Suspect]
     Indication: HYPERCHOLESTEROLAEMIA
     Route: 048
  2. LIPITOR [Suspect]
     Indication: PROPHYLAXIS
  3. ZANIDIP [Concomitant]
     Dosage: DAILY DOSE:10MG
     Route: 048
  4. HYPERIUM [Concomitant]
     Route: 048
  5. PREVISCAN [Concomitant]
     Dosage: DAILY DOSE:20MG
     Route: 048
  6. GAVISCON [Concomitant]
  7. CORVASAL [Concomitant]
     Route: 048
  8. TRIATEC [Concomitant]
     Dosage: DAILY DOSE:10MG
     Route: 048
  9. ESIDRIX [Concomitant]
     Dosage: DAILY DOSE:25MG
     Route: 048
  10. OMEPRAZOLE [Concomitant]
     Dosage: DAILY DOSE:20MG
     Route: 048
  11. CORDARONE [Concomitant]
     Dosage: DAILY DOSE:100MG
     Route: 048
  12. DOLIPRANE [Concomitant]
     Dosage: DAILY DOSE:3000MG
     Route: 048
  13. ATARAX [Concomitant]
     Dosage: DAILY DOSE:50MG
     Route: 048
  14. PINDOLOL [Concomitant]
     Dosage: DAILY DOSE:2.5MG
     Route: 048

REACTIONS (2)
  - PAIN [None]
  - TENDON RUPTURE [None]
